FAERS Safety Report 18724325 (Version 2)
Quarter: 2022Q1

REPORT INFORMATION
  Report Type: Spontaneous
  Country: US (occurrence: US)
  Receive Date: 20210111
  Receipt Date: 20220111
  Transmission Date: 20220423
  Serious: No
  Sender: FDA-Public Use
  Company Number: US-PFIZER INC-2020199968

PATIENT
  Age: 78 Year
  Sex: Female
  Weight: 104 kg

DRUGS (1)
  1. XELJANZ XR [Suspect]
     Active Substance: TOFACITINIB CITRATE
     Indication: Rheumatoid arthritis
     Dosage: 11 MG, 1X/DAY(11MG TABLET BY MOUTH ONCE A DAY)
     Route: 048
     Dates: start: 2019

REACTIONS (2)
  - Dysphonia [Unknown]
  - Product prescribing error [Unknown]
